FAERS Safety Report 5020267-9 (Version None)
Quarter: 2006Q2

REPORT INFORMATION
  Report Type: 
  Country: None (occurrence: None)
  Receive Date: 20060602
  Receipt Date: 20060517
  Transmission Date: 20061013
  Serious: Yes (Hospitalization)
  Sender: FDA-Public Use
  Company Number: 8017084

PATIENT
  Age: 54 Year
  Sex: Female

DRUGS (5)
  1. KEPPRA [Suspect]
     Indication: EPILEPSY
     Dosage: EPILEPSY
     Dates: start: 20060401, end: 20060510
  2. EMCONCOR [Concomitant]
  3. GABAPENTIN [Concomitant]
  4. TROMALYT [Concomitant]
  5. PROZAC [Concomitant]

REACTIONS (3)
  - AKATHISIA [None]
  - CEREBELLAR SYNDROME [None]
  - TREMOR [None]
